FAERS Safety Report 20619651 (Version 1)
Quarter: 2022Q1

REPORT INFORMATION
  Report Type: Spontaneous
  Country: GB (occurrence: GB)
  Receive Date: 20220322
  Receipt Date: 20220322
  Transmission Date: 20220424
  Serious: Yes (Other)
  Sender: FDA-Public Use
  Company Number: GB-MHRA-MED-202203081006340910-O4X4O

PATIENT
  Age: 78 Year
  Weight: 74 kg

DRUGS (3)
  1. CODEINE PHOSPHATE [Suspect]
     Active Substance: CODEINE PHOSPHATE
     Indication: Pain
     Dosage: UNK
     Route: 065
     Dates: end: 20211001
  2. DULOXETINE [Suspect]
     Active Substance: DULOXETINE
     Indication: Pain
     Dosage: UNK (VARIOUS WITHIN NORMAL RANGE, REDUCING TO 30MG/D)
     Route: 065
     Dates: start: 20181120, end: 20200101
  3. MORPHINE SULFATE [Suspect]
     Active Substance: MORPHINE SULFATE
     Indication: Adverse drug reaction
     Dosage: UNK (CAN^T REMEMBER DATE OR DOSE)
     Route: 065

REACTIONS (2)
  - Constipation [Not Recovered/Not Resolved]
  - Medication error [Unknown]
